FAERS Safety Report 18653856 (Version 1)
Quarter: 2020Q4

REPORT INFORMATION
  Report Type: Spontaneous
  Country: US (occurrence: US)
  Receive Date: 20201222
  Receipt Date: 20201222
  Transmission Date: 20210114
  Serious: Yes (Other)
  Sender: FDA-Public Use
  Company Number: None

PATIENT

DRUGS (1)
  1. CLOSYS [Suspect]
     Active Substance: SODIUM FLUORIDE
     Indication: DENTAL CARE
     Route: 048
     Dates: start: 20200220, end: 20201210

REACTIONS (2)
  - Toothache [None]
  - Dysgeusia [None]

NARRATIVE: CASE EVENT DATE: 20201210
